FAERS Safety Report 6700567-4 (Version None)
Quarter: 2010Q2

REPORT INFORMATION
  Report Type: 
  Country: None (occurrence: None)
  Receive Date: 20100428
  Receipt Date: 20100421
  Transmission Date: 20101027
  Serious: Yes (Hospitalization)
  Sender: FDA-Public Use
  Company Number: B0649268A

PATIENT
  Sex: Female

DRUGS (3)
  1. REQUIP [Suspect]
     Indication: DEPRESSION
     Route: 048
     Dates: start: 20080820, end: 20090101
  2. REQUIP [Suspect]
     Dosage: 7.5MG PER DAY
     Route: 048
     Dates: start: 20090101, end: 20100112
  3. REQUIP [Suspect]
     Route: 048
     Dates: start: 20100113, end: 20100217

REACTIONS (2)
  - HALLUCINATION [None]
  - PARANOIA [None]
